FAERS Safety Report 21586974 (Version 1)
Quarter: 2022Q4

REPORT INFORMATION
  Report Type: Spontaneous
  Country: US (occurrence: None)
  Receive Date: 20221110
  Receipt Date: 20221110
  Transmission Date: 20230113
  Serious: Yes (Hospitalization)
  Sender: FDA-Public Use
  Company Number: None

PATIENT
  Sex: Female

DRUGS (6)
  1. SODIUM CHLORIDE INHALATION SOLUTION [Suspect]
     Active Substance: SODIUM CHLORIDE
     Indication: Cystic fibrosis
     Route: 055
     Dates: start: 20220806
  2. ALBUTEROL [Concomitant]
     Active Substance: ALBUTEROL
  3. AMOXICILLIN SUS [Concomitant]
  4. COMPLETE FORM DROP [Concomitant]
  5. CREON [Concomitant]
     Active Substance: PANCRELIPASE AMYLASE\PANCRELIPASE LIPASE\PANCRELIPASE PROTEASE
  6. POLYETH GLYC [Concomitant]

REACTIONS (2)
  - Cough [None]
  - Pyrexia [None]
